FAERS Safety Report 17080571 (Version 1)
Quarter: 2019Q4

REPORT INFORMATION
  Report Type: Spontaneous
  Country: US (occurrence: US)
  Receive Date: 20191126
  Receipt Date: 20191126
  Transmission Date: 20200122
  Serious: Yes (Hospitalization)
  Sender: FDA-Public Use
  Company Number: None

PATIENT
  Age: 50 Year
  Sex: Female

DRUGS (5)
  1. HUMIRA [Suspect]
     Active Substance: ADALIMUMAB
     Indication: PSORIATIC ARTHROPATHY
     Dosage: ?          OTHER FREQUENCY:EVERY 14 DAYS;?
     Route: 058
     Dates: start: 20180117
  2. PREDNISONE. [Concomitant]
     Active Substance: PREDNISONE
  3. TOPIRAMATE. [Concomitant]
     Active Substance: TOPIRAMATE
  4. VITAMIN D [Concomitant]
     Active Substance: VITAMIN D NOS
  5. PANTOPRAZOLE [Concomitant]
     Active Substance: PANTOPRAZOLE

REACTIONS (2)
  - Hepatic vascular thrombosis [None]
  - Therapy cessation [None]

NARRATIVE: CASE EVENT DATE: 20191014
